FAERS Safety Report 12228075 (Version 1)
Quarter: 2016Q1

REPORT INFORMATION
  Report Type: Spontaneous
  Country: US (occurrence: None)
  Receive Date: 20160330
  Receipt Date: 20160330
  Transmission Date: 20160526
  Serious: Yes (Hospitalization)
  Sender: FDA-Public Use
  Company Number: None

PATIENT
  Age: 69 Year
  Sex: Male

DRUGS (14)
  1. METRONIDAZOL [Concomitant]
     Active Substance: METRONIDAZOLE
  2. LOPERAMIDE [Concomitant]
     Active Substance: LOPERAMIDE
  3. ATENOLOL. [Concomitant]
     Active Substance: ATENOLOL
  4. CAPECITABINE 500MG TAB [Suspect]
     Active Substance: CAPECITABINE
     Indication: NEOPLASM MALIGNANT
     Dosage: 5 TAB QAM PO
     Route: 048
     Dates: start: 201601, end: 201602
  5. OXYCD/APAP [Concomitant]
  6. ATORVATATIN [Concomitant]
  7. TEMAZEPAM. [Concomitant]
     Active Substance: TEMAZEPAM
  8. QUETIAPINE [Concomitant]
     Active Substance: QUETIAPINE
  9. LOSART/HCT [Concomitant]
  10. GLIMEPRIRIDE [Concomitant]
  11. TAMSULOSIN [Concomitant]
     Active Substance: TAMSULOSIN
  12. PANTOPRAZOLE [Concomitant]
     Active Substance: PANTOPRAZOLE SODIUM
  13. KOMBIGLYZE XR [Concomitant]
     Active Substance: METFORMIN HYDROCHLORIDE\SAXAGLIPTIN HYDROCHLORIDE
  14. CEFUROXIME. [Concomitant]
     Active Substance: CEFUROXIME

REACTIONS (6)
  - Diarrhoea [None]
  - Malaise [None]
  - Weight decreased [None]
  - Gastric infection [None]
  - Skin exfoliation [None]
  - Asthenia [None]

NARRATIVE: CASE EVENT DATE: 20160212
